FAERS Safety Report 5642872-9 (Version None)
Quarter: 2008Q1

REPORT INFORMATION
  Report Type: 
  Country: None (occurrence: None)
  Receive Date: 20080228
  Receipt Date: 20080219
  Transmission Date: 20080703
  Serious: Yes (Other)
  Sender: FDA-Public Use
  Company Number: GB-JNJFOC-20080204949

PATIENT
  Sex: Male

DRUGS (3)
  1. PREZISTA [Suspect]
     Indication: HIV INFECTION
     Route: 048
  2. TMC125 [Concomitant]
     Indication: HIV INFECTION
     Route: 048
  3. TENOFOVIR [Concomitant]
     Indication: HIV INFECTION
     Route: 065

REACTIONS (3)
  - AMNESIA [None]
  - DISORIENTATION [None]
  - NERVOUS SYSTEM DISORDER [None]
